FAERS Safety Report 15954705 (Version 1)
Quarter: 2019Q1

REPORT INFORMATION
  Report Type: Spontaneous
  Country: FR (occurrence: FR)
  Receive Date: 20190213
  Receipt Date: 20190213
  Transmission Date: 20190417
  Serious: Yes (Death, Hospitalization)
  Sender: FDA-Public Use
  Company Number: FR-TEVA-2019-FR-1009075

PATIENT
  Age: 76 Year
  Sex: Male

DRUGS (3)
  1. BISOPROLOL [Suspect]
     Active Substance: BISOPROLOL
     Indication: MYOCARDIAL ISCHAEMIA
     Route: 048
  2. AMIODARONE [Suspect]
     Active Substance: AMIODARONE
     Indication: MYOCARDIAL ISCHAEMIA
     Route: 048
  3. COUMADINE [Suspect]
     Active Substance: WARFARIN SODIUM
     Indication: ATRIAL FIBRILLATION
     Route: 065

REACTIONS (3)
  - Subarachnoid haemorrhage [Fatal]
  - Intraventricular haemorrhage [Fatal]
  - Subdural haemorrhage [Fatal]

NARRATIVE: CASE EVENT DATE: 20180529
